FAERS Safety Report 6009088-8 (Version None)
Quarter: 2008Q4

REPORT INFORMATION
  Report Type: 
  Country: None (occurrence: None)
  Receive Date: 20081216
  Receipt Date: 20081205
  Transmission Date: 20090506
  Serious: Yes (Hospitalization)
  Sender: FDA-Public Use
  Company Number: DEP_00189_2008

PATIENT
  Age: 69 Year
  Sex: Female

DRUGS (8)
  1. METFORMIN HCL [Suspect]
     Indication: TYPE 2 DIABETES MELLITUS
     Dosage: (1 G TID)
  2. ACETYLSALICYLIC ACID (UNKNOWN) [Concomitant]
  3. CARVEDILOL (UNKNOWN) [Concomitant]
  4. FUROSEMIDE [Concomitant]
  5. GLICLAZIDE (UNKNOWN) [Concomitant]
  6. TELMISARTAN (UNKNOWN) [Concomitant]
  7. ATORVASTATIN (UNKNOWN) [Concomitant]
  8. INSULIN (UNKNOWN) [Concomitant]

REACTIONS (9)
  - BLOOD PRESSURE IMMEASURABLE [None]
  - BRADYCARDIA [None]
  - CARDIAC ARREST [None]
  - COMA [None]
  - CONTINUOUS HAEMODIAFILTRATION [None]
  - HYPOGLYCAEMIA [None]
  - LACTIC ACIDOSIS [None]
  - PULSE PRESSURE DECREASED [None]
  - RENAL FAILURE [None]
